FAERS Safety Report 21436317 (Version 4)
Quarter: 2022Q4

REPORT INFORMATION
  Report Type: Report from Study
  Country: AR (occurrence: AR)
  Receive Date: 20221010
  Receipt Date: 20221222
  Transmission Date: 20230113
  Serious: Yes (Hospitalization)
  Sender: FDA-Public Use
  Company Number: AR-TAKEDA-2022TUS066548

PATIENT
  Age: 8 Year
  Sex: Male

DRUGS (6)
  1. ANTIHEMOPHILIC FACTOR, PEGYLATED (MW 20000) HUMAN SEQUENCE RECOMBINANT [Suspect]
     Active Substance: ANTIHEMOPHILIC FACTOR, PEGYLATED (MW 20000) HUMAN SEQUENCE RECOMBINANT
     Indication: Prophylaxis
     Dosage: 1000 INTERNATIONAL UNIT, 2/WEEK
     Route: 042
     Dates: start: 202010
  2. ANTIHEMOPHILIC FACTOR, PEGYLATED (MW 20000) HUMAN SEQUENCE RECOMBINANT [Suspect]
     Active Substance: ANTIHEMOPHILIC FACTOR, PEGYLATED (MW 20000) HUMAN SEQUENCE RECOMBINANT
     Indication: Prophylaxis
     Dosage: 1000 INTERNATIONAL UNIT, 2/WEEK
     Route: 042
     Dates: start: 202010
  3. ANTIHEMOPHILIC FACTOR, PEGYLATED (MW 20000) HUMAN SEQUENCE RECOMBINANT [Suspect]
     Active Substance: ANTIHEMOPHILIC FACTOR, PEGYLATED (MW 20000) HUMAN SEQUENCE RECOMBINANT
     Indication: Prophylaxis
     Dosage: 1000 INTERNATIONAL UNIT, 2/WEEK
     Route: 042
     Dates: start: 202010
  4. ANTIHEMOPHILIC FACTOR, PEGYLATED (MW 20000) HUMAN SEQUENCE RECOMBINANT [Suspect]
     Active Substance: ANTIHEMOPHILIC FACTOR, PEGYLATED (MW 20000) HUMAN SEQUENCE RECOMBINANT
     Dosage: 1000 INTERNATIONAL UNIT, 2/WEEK
     Route: 042
     Dates: start: 202010
  5. ANTIHEMOPHILIC FACTOR, PEGYLATED (MW 20000) HUMAN SEQUENCE RECOMBINANT [Suspect]
     Active Substance: ANTIHEMOPHILIC FACTOR, PEGYLATED (MW 20000) HUMAN SEQUENCE RECOMBINANT
     Dosage: 1000 INTERNATIONAL UNIT, 2/WEEK
     Route: 042
     Dates: start: 202010
  6. ANTIHEMOPHILIC FACTOR, PEGYLATED (MW 20000) HUMAN SEQUENCE RECOMBINANT [Suspect]
     Active Substance: ANTIHEMOPHILIC FACTOR, PEGYLATED (MW 20000) HUMAN SEQUENCE RECOMBINANT
     Dosage: 1000 INTERNATIONAL UNIT, 2/WEEK
     Route: 042
     Dates: start: 202010

REACTIONS (7)
  - Haematuria [Recovered/Resolved]
  - Pyrexia [Recovered/Resolved]
  - Bronchitis [Recovering/Resolving]
  - Respiratory symptom [Recovered/Resolved]
  - Influenza [Recovering/Resolving]
  - Product label issue [Unknown]
  - Suspected product quality issue [Unknown]

NARRATIVE: CASE EVENT DATE: 20220916
